FAERS Safety Report 4656926-7 (Version None)
Quarter: 2005Q2

REPORT INFORMATION
  Report Type: 
  Country: None (occurrence: None)
  Receive Date: 20050505
  Receipt Date: 20050425
  Transmission Date: 20051028
  Serious: Yes (Hospitalization)
  Sender: FDA-Public Use
  Company Number: 2005UW06392

PATIENT
  Age: 71 Year
  Sex: Female

DRUGS (3)
  1. CRESTOR [Suspect]
     Dosage: 10 MG PO
     Route: 048
  2. DURAGESIC-100 [Suspect]
     Indication: ARTHRITIS
     Dosage: WEARING 3 PATCHES
  3. 10 TO 15 OTHER MEDICATIONS (NOT SPECIFIED) [Concomitant]

REACTIONS (3)
  - CONTUSION [None]
  - IMMOBILE [None]
  - RHABDOMYOLYSIS [None]
